FAERS Safety Report 6213909-3 (Version None)
Quarter: 2009Q2

REPORT INFORMATION
  Report Type: 
  Country: None (occurrence: None)
  Receive Date: 20090602
  Receipt Date: 20090519
  Transmission Date: 20091009
  Serious: Yes (Other)
  Sender: FDA-Public Use
  Company Number: TRP_06235_2009

PATIENT
  Age: 38 Year
  Sex: Female

DRUGS (2)
  1. RIBAVIRIN [Suspect]
     Indication: HEPATITIS C
     Dosage: (1000 MG)
     Dates: start: 20081017, end: 20081027
  2. PEGASYS [Suspect]
     Indication: HEPATITIS C
     Dosage: (180 MICROGRAM 1X/WEEK INTRAMUSCULAR)
     Route: 030
     Dates: start: 20081017, end: 20081027

REACTIONS (3)
  - ABORTION SPONTANEOUS [None]
  - DRUG EXPOSURE DURING PREGNANCY [None]
  - PREGNANCY [None]
